FAERS Safety Report 18839938 (Version 1)
Quarter: 2021Q1

REPORT INFORMATION
  Report Type: Report from Study
  Country: US (occurrence: US)
  Receive Date: 20210204
  Receipt Date: 20210204
  Transmission Date: 20210419
  Serious: No
  Sender: FDA-Public Use
  Company Number: US-EXELIXIS-CABO-20034435

PATIENT
  Age: 69 Year
  Sex: Male
  Weight: 153 kg

DRUGS (3)
  1. CABOMETYX [Suspect]
     Active Substance: CABOZANTINIB S-MALATE
     Dosage: 60 MG, QOD
     Route: 048
     Dates: start: 20201117
  2. METOPROLOL. [Concomitant]
     Active Substance: METOPROLOL
  3. CABOMETYX [Suspect]
     Active Substance: CABOZANTINIB S-MALATE
     Indication: RENAL CANCER
     Dosage: 60 MG, QD
     Route: 048
     Dates: start: 20201008, end: 20201104

REACTIONS (9)
  - Stomatitis [Unknown]
  - Increased viscosity of upper respiratory secretion [Unknown]
  - Pain in extremity [Unknown]
  - Blister [Unknown]
  - Skin ulcer [Unknown]
  - Inappropriate schedule of product administration [Unknown]
  - Blood pressure increased [Unknown]
  - Blood thyroid stimulating hormone abnormal [Unknown]
  - Pruritus [Unknown]

NARRATIVE: CASE EVENT DATE: 202010
